FAERS Safety Report 7573570-2 (Version None)
Quarter: 2011Q2

REPORT INFORMATION
  Report Type: 
  Country: None (occurrence: None)
  Receive Date: 20110627
  Receipt Date: 20110616
  Transmission Date: 20111010
  Serious: Yes (Other)
  Sender: FDA-Public Use
  Company Number: RS-US-EMD SERONO, INC.-7055069

PATIENT
  Age: 39 Year
  Sex: Female

DRUGS (3)
  1. REBIF [Suspect]
     Dates: start: 20110401, end: 20110401
  2. REBIF [Suspect]
     Indication: MULTIPLE SCLEROSIS
     Dates: start: 20110331, end: 20110401
  3. REBIF [Suspect]
     Dates: start: 20110401

REACTIONS (7)
  - HORMONE LEVEL ABNORMAL [None]
  - HEADACHE [None]
  - OVARIAN CYST RUPTURED [None]
  - MENORRHAGIA [None]
  - UTERINE MASS [None]
  - INFLUENZA LIKE ILLNESS [None]
  - VAGINAL DISCHARGE [None]
